FAERS Safety Report 19834806 (Version 1)
Quarter: 2021Q3

REPORT INFORMATION
  Report Type: Spontaneous
  Country: NL (occurrence: NL)
  Receive Date: 20210914
  Receipt Date: 20210914
  Transmission Date: 20211014
  Serious: Yes (Death, Other)
  Sender: FDA-Public Use
  Company Number: NL-AMGEN-NLDSP2021138496

PATIENT
  Age: 74 Year
  Sex: Female
  Weight: 67 kg

DRUGS (11)
  1. COVID?19 VACCINE NOS. [Suspect]
     Active Substance: COVID-19 VACCINE NOS
     Indication: PRODUCT USED FOR UNKNOWN INDICATION
     Route: 065
     Dates: start: 20210419
  2. CALCIUM CARBONATE AND VITAMIN D [Concomitant]
     Active Substance: CALCIUM CARBONATE\VITAMIN D
  3. ESOMEPRAZOL +PHARMA [Concomitant]
     Dates: start: 20200921
  4. MIRTAZAPINE. [Concomitant]
     Active Substance: MIRTAZAPINE
     Dates: start: 20200518
  5. CAPHOSOL [CALCIUM CHLORIDE;SODIUM CHLORIDE;SODIUM PHOSPHATE DIBASIC;SO [Concomitant]
     Dates: start: 20200921
  6. PERTUZUMAB. [Suspect]
     Active Substance: PERTUZUMAB
     Indication: PRODUCT USED FOR UNKNOWN INDICATION
     Dosage: INJECTION FLUID DOSE EVERY 3 WEEKS 420 MG MAINTENANCE DOSE
     Route: 065
     Dates: start: 202005, end: 20210414
  7. METOCLOPRAMIDE. [Concomitant]
     Active Substance: METOCLOPRAMIDE
     Dates: start: 20200921
  8. LOPERAMIDE [Concomitant]
     Active Substance: LOPERAMIDE
     Dates: start: 20200921
  9. TRASTUZUMAB. [Suspect]
     Active Substance: TRASTUZUMAB
     Indication: PRODUCT USED FOR UNKNOWN INDICATION
     Dosage: INJECTION FLUID DOSE EVERY 3 WEEKS 420 MG MAINTENANCE DOSE
     Route: 065
     Dates: start: 202005, end: 20210414
  10. RINGER LACTAAT [Concomitant]
     Active Substance: CALCIUM CHLORIDE\POTASSIUM CHLORIDE\SODIUM CHLORIDE\SODIUM LACTATE
  11. CLEMASTINE ESCOM [Concomitant]
     Dosage: UNK
     Dates: start: 202011

REACTIONS (1)
  - Death [Fatal]

NARRATIVE: CASE EVENT DATE: 20210420
